FAERS Safety Report 16970248 (Version 1)
Quarter: 2019Q4

REPORT INFORMATION
  Report Type: Report from Study
  Country: MX (occurrence: MX)
  Receive Date: 20191029
  Receipt Date: 20191029
  Transmission Date: 20200122
  Serious: Yes (Death, Hospitalization, Other)
  Sender: FDA-Public Use
  Company Number: NVSC2019MX016924

PATIENT
  Age: 66 Year
  Sex: Male
  Weight: 105 kg

DRUGS (4)
  1. ENTRESTO [Suspect]
     Active Substance: SACUBITRIL\VALSARTAN
     Indication: POOR PERIPHERAL CIRCULATION
     Dosage: 1 DF (50 MG (SACUBITRIL 24MG AND VALSARTAN 26MG), BID
     Route: 048
     Dates: start: 201903
  2. LOSARTAN. [Concomitant]
     Active Substance: LOSARTAN
     Indication: HYPERTENSION
     Dosage: STARTED SEVERAL YEARS AGO
     Route: 048
  3. METFORMIN [Concomitant]
     Active Substance: METFORMIN HYDROCHLORIDE
     Indication: DIABETES MELLITUS
     Dosage: 850 MG (STARTED SEVERAL YEARS AGO)
     Route: 048
  4. INSULIN [Concomitant]
     Active Substance: INSULIN NOS
     Indication: DIABETES MELLITUS
     Dosage: STARTED SEVERAL YEARS AGO
     Route: 048

REACTIONS (4)
  - Product use in unapproved indication [Unknown]
  - Pneumonia [Fatal]
  - Acute myocardial infarction [Fatal]
  - Pneumothorax [Fatal]

NARRATIVE: CASE EVENT DATE: 201908
